FAERS Safety Report 14151223 (Version 1)
Quarter: 2017Q4

REPORT INFORMATION
  Report Type: Spontaneous
  Country: TR (occurrence: TR)
  Receive Date: 20171102
  Receipt Date: 20171102
  Transmission Date: 20180321
  Serious: Yes (Other)
  Sender: FDA-Public Use
  Company Number: TR-SUN PHARMACEUTICAL INDUSTRIES LTD-2016R1-129192

PATIENT
  Age: 50 Year
  Sex: Female

DRUGS (3)
  1. METHOTREXATE. [Suspect]
     Active Substance: METHOTREXATE
     Indication: PSORIASIS
     Dosage: TOTAL 17.5 MG/WEEK
     Route: 065
  2. METHOTREXATE. [Interacting]
     Active Substance: METHOTREXATE
     Indication: PSORIASIS
     Route: 065
  3. BEETROOT JUICE [Interacting]
     Active Substance: BEET
     Indication: PHYTOTHERAPY
     Dosage: UNK
     Route: 065

REACTIONS (9)
  - Folate deficiency [Unknown]
  - Thrombocytopenia [Recovered/Resolved]
  - Toxicity to various agents [Unknown]
  - Haematuria [Unknown]
  - Leukopenia [Recovered/Resolved]
  - Ulcer haemorrhage [Recovered/Resolved]
  - Food interaction [Unknown]
  - Drug interaction [Unknown]
  - Ulcer [Recovered/Resolved]
